FAERS Safety Report 5155405-0 (Version None)
Quarter: 2006Q4

REPORT INFORMATION
  Report Type: 
  Country: None (occurrence: None)
  Receive Date: 20061121
  Receipt Date: 20061006
  Transmission Date: 20070319
  Serious: Yes (Other)
  Sender: FDA-Public Use
  Company Number: BE-SANOFI-SYNTHELABO-A01200608337

PATIENT
  Sex: Female
  Weight: 72 kg

DRUGS (7)
  1. RADIOTHERAPY [Concomitant]
     Indication: COLORECTAL CANCER
     Dosage: 2 X 25 GY UNK
     Route: 065
     Dates: start: 20060901, end: 20060901
  2. LIPITOR [Concomitant]
     Indication: BLOOD CHOLESTEROL
     Dosage: 20 MG
     Route: 065
     Dates: start: 20010101
  3. NOVONORM [Concomitant]
     Indication: DIABETES MELLITUS
     Dosage: 3 PER DAY UNK
     Route: 048
     Dates: start: 20010101
  4. GLUCOPHAGE [Concomitant]
     Indication: DIABETES MELLITUS
     Dosage: 2550 MG
     Route: 048
     Dates: start: 20010101
  5. LEUCOVORIN CALCIUM [Concomitant]
     Indication: COLORECTAL CANCER
     Dosage: UNK
     Route: 042
     Dates: start: 20060901, end: 20060901
  6. FLUOROURACIL [Concomitant]
     Indication: COLORECTAL CANCER
     Route: 042
     Dates: start: 20060901, end: 20060901
  7. ELOXATIN [Suspect]
     Indication: COLORECTAL CANCER
     Route: 042
     Dates: start: 20060920, end: 20060920

REACTIONS (3)
  - HAEMOLYSIS [None]
  - HEPATITIS [None]
  - THROMBOCYTOPENIA [None]
